FAERS Safety Report 5639968-4 (Version None)
Quarter: 2008Q1

REPORT INFORMATION
  Report Type: 
  Country: None (occurrence: None)
  Receive Date: 20080226
  Receipt Date: 20080226
  Transmission Date: 20080703
  Serious: Yes (Hospitalization)
  Sender: FDA-Public Use
  Company Number: None

PATIENT
  Age: 60 Year
  Sex: Male
  Weight: 105 kg

DRUGS (2)
  1. IBUPROFEN [Suspect]
     Dosage: PO
     Route: 048
     Dates: start: 20080121
  2. ASPIRIN [Suspect]
     Dosage: 81MG EVERY DAY PO
     Route: 048
     Dates: start: 20080121, end: 20080128

REACTIONS (5)
  - ABDOMINAL PAIN UPPER [None]
  - ALCOHOL USE [None]
  - DIARRHOEA [None]
  - GASTRIC HAEMORRHAGE [None]
  - HAEMORRHAGE [None]
